FAERS Safety Report 6906442-4 (Version None)
Quarter: 2010Q3

REPORT INFORMATION
  Report Type: 
  Country: None (occurrence: None)
  Receive Date: 20100804
  Receipt Date: 20100726
  Transmission Date: 20110219
  Serious: Yes (Other)
  Sender: FDA-Public Use
  Company Number: B0668062A

PATIENT
  Sex: Male

DRUGS (12)
  1. PAROXETINE HCL [Suspect]
     Indication: DEPRESSION
     Route: 065
     Dates: start: 19930817, end: 19940228
  2. PAROXETINE HCL [Suspect]
     Dosage: 20MG TWICE PER DAY
     Route: 065
     Dates: start: 19940301, end: 19970415
  3. FLUANXOL [Concomitant]
  4. ALOE VERA [Concomitant]
  5. ENALAPRIL MALEATE [Concomitant]
     Dates: start: 19900130
  6. TELDANEX [Concomitant]
     Dates: start: 19901210
  7. FUCIDINE CAP [Concomitant]
     Dates: start: 19901210
  8. UNKNOWN DRUG [Concomitant]
  9. TRUXAL [Concomitant]
     Dosage: 25MG PER DAY
  10. BRICANYL TURBOHALER [Concomitant]
     Dosage: .5U FOUR TIMES PER DAY
     Route: 055
  11. UNKNOWN DRUG [Concomitant]
     Dosage: .5MG TWICE PER DAY
  12. CIPRAMIL [Concomitant]
     Dosage: 20MG TWICE PER DAY
     Dates: start: 19970417

REACTIONS (8)
  - APHASIA [None]
  - ERECTILE DYSFUNCTION [None]
  - FORMICATION [None]
  - ILL-DEFINED DISORDER [None]
  - INSOMNIA [None]
  - MICTURITION URGENCY [None]
  - THOUGHT BLOCKING [None]
  - WITHDRAWAL SYNDROME [None]
